FAERS Safety Report 22365374 (Version 2)
Quarter: 2023Q2

REPORT INFORMATION
  Report Type: Spontaneous
  Country: JP (occurrence: JP)
  Receive Date: 20230525
  Receipt Date: 20230606
  Transmission Date: 20230721
  Serious: Yes (Death, Other)
  Sender: FDA-Public Use
  Company Number: JP-CHUGAI-2023018457

PATIENT
  Age: 67 Year
  Sex: Male

DRUGS (5)
  1. TECENTRIQ [Suspect]
     Active Substance: ATEZOLIZUMAB
     Indication: Non-small cell lung cancer
     Dosage: 1200 MILLIGRAM, SINGLE
     Route: 041
     Dates: start: 20230516, end: 20230516
  2. AVASTIN [Suspect]
     Active Substance: BEVACIZUMAB
     Indication: Non-small cell lung cancer
     Dosage: UNK, SINGLE
     Route: 041
     Dates: start: 20230516, end: 20230516
  3. CARBOPLATIN [Suspect]
     Active Substance: CARBOPLATIN
     Indication: Non-small cell lung cancer
     Dosage: UNK
     Route: 041
     Dates: start: 20230516, end: 20230516
  4. PACLITAXEL [Suspect]
     Active Substance: PACLITAXEL
     Indication: Non-small cell lung cancer
     Dosage: UNK
     Route: 041
     Dates: start: 20230516, end: 20230516
  5. INSULIN NOS [Suspect]
     Active Substance: INSULIN NOS
     Indication: Diabetes mellitus
     Dosage: UNK
     Route: 058

REACTIONS (3)
  - Cardio-respiratory arrest [Fatal]
  - Adrenal insufficiency [Unknown]
  - Blood glucose decreased [Unknown]

NARRATIVE: CASE EVENT DATE: 20230520
